FAERS Safety Report 7438154-5 (Version None)
Quarter: 2011Q2

REPORT INFORMATION
  Report Type: 
  Country: None (occurrence: None)
  Receive Date: 20110421
  Receipt Date: 20110421
  Transmission Date: 20111010
  Serious: No
  Sender: FDA-Public Use
  Company Number: None

PATIENT
  Age: 58 Year
  Sex: Female
  Weight: 62.1428 kg

DRUGS (1)
  1. SPIRONOLACTONE [Suspect]
     Indication: HYPERTENSION
     Dosage: 25MG 2X DAILY
     Dates: start: 20110305, end: 20110405

REACTIONS (9)
  - HYPOAESTHESIA [None]
  - MUSCLE SPASMS [None]
  - MUSCLE FATIGUE [None]
  - MUSCULAR WEAKNESS [None]
  - MENTAL DISORDER [None]
  - INFLAMMATION [None]
  - NASOPHARYNGITIS [None]
  - FEELING COLD [None]
  - MUSCULOSKELETAL CHEST PAIN [None]
